FAERS Safety Report 16563172 (Version 18)
Quarter: 2020Q2

REPORT INFORMATION
  Report Type: Spontaneous
  Country: DE (occurrence: DE)
  Receive Date: 20190711
  Receipt Date: 20200505
  Transmission Date: 20200713
  Serious: Yes (Death, Life-Threatening, Hospitalization, Other)
  Sender: FDA-Public Use
  Company Number: DE-CELLTRION INC.-2019DE022709

PATIENT

DRUGS (30)
  1. RITUXIMAB (UNKNOWN) [Suspect]
     Active Substance: RITUXIMAB
     Dosage: SIX CYCLES
     Route: 065
     Dates: start: 201707, end: 201712
  2. BENDAMUSTINE [Suspect]
     Active Substance: BENDAMUSTINE
     Indication: NON-HODGKIN^S LYMPHOMA
     Dosage: UNK UNK, CYCLIC (6 CYCLES BETWEEN JULY AND DEC 2017)
     Route: 065
     Dates: start: 201707, end: 201712
  3. BENDAMUSTINE [Suspect]
     Active Substance: BENDAMUSTINE
     Dosage: SIX CYCLES ADMINISTERED
     Dates: start: 201707, end: 201712
  4. OBINUTUZUMAB. [Suspect]
     Active Substance: OBINUTUZUMAB
     Indication: PRIMARY GASTROINTESTINAL FOLLICULAR LYMPHOMA
     Dosage: MAINTAINANCE THERAPY
  5. OBINUTUZUMAB. [Suspect]
     Active Substance: OBINUTUZUMAB
     Indication: B-CELL LYMPHOMA
     Dosage: UNK, UNKNOWN FREQ (FIRST LINE THERAPY ).
     Route: 042
  6. OBINUTUZUMAB. [Suspect]
     Active Substance: OBINUTUZUMAB
     Dosage: UNKNOWN
     Route: 065
     Dates: start: 201802
  7. OBINUTUZUMAB. [Suspect]
     Active Substance: OBINUTUZUMAB
     Dosage: 1000 MILLIGRAM
     Route: 065
     Dates: start: 201802
  8. RITUXIMAB (UNKNOWN) [Suspect]
     Active Substance: RITUXIMAB
     Indication: B-CELL LYMPHOMA
     Dosage: UNK
     Route: 065
  9. RITUXIMAB (UNKNOWN) [Suspect]
     Active Substance: RITUXIMAB
     Dosage: UNK (6 CYCLES)
     Route: 065
     Dates: start: 201707, end: 201712
  10. RITUXIMAB (UNKNOWN) [Suspect]
     Active Substance: RITUXIMAB
     Dosage: UNK
     Route: 065
  11. RITUXIMAB (UNKNOWN) [Suspect]
     Active Substance: RITUXIMAB
     Indication: B-CELL LYMPHOMA
     Dosage: UNK UNK, CYCLIC (6 CYCLES BETWEEN JULY AND DEC 2017)
     Route: 042
     Dates: start: 201707, end: 201712
  12. RITUXIMAB (UNKNOWN) [Suspect]
     Active Substance: RITUXIMAB
     Indication: B-CELL LYMPHOMA
     Dosage: UNK
     Route: 065
  13. BENDAMUSTINE [Suspect]
     Active Substance: BENDAMUSTINE
     Indication: PRIMARY GASTROINTESTINAL FOLLICULAR LYMPHOMA
     Dosage: INDUCTION TREATMENT
  14. BENDAMUSTINE [Suspect]
     Active Substance: BENDAMUSTINE
     Indication: B-CELL LYMPHOMA
     Dosage: UNK, Q4WEEKS, SIX CYCLES
     Route: 041
     Dates: start: 201707, end: 201712
  15. GAZYVARO [Suspect]
     Active Substance: OBINUTUZUMAB
     Indication: B-CELL LYMPHOMA
     Dosage: 1000 MG, EVERY 8 WEEKS
     Route: 042
     Dates: start: 20180219, end: 20190109
  16. BENDAMUSTINE [Suspect]
     Active Substance: BENDAMUSTINE
     Indication: B-CELL LYMPHOMA
     Dosage: UNK
     Route: 065
  17. RITUXIMAB (UNKNOWN) [Suspect]
     Active Substance: RITUXIMAB
     Dosage: UNK UNK, CYCLIC (6 CYCLES BETWEEN JULY AND DEC 2017)
     Route: 042
     Dates: start: 201707, end: 201712
  18. BENDAMUSTINE [Suspect]
     Active Substance: BENDAMUSTINE
     Indication: B-CELL LYMPHOMA
     Dosage: UNK
     Route: 065
     Dates: start: 201707, end: 201712
  19. BENDAMUSTINE [Suspect]
     Active Substance: BENDAMUSTINE
     Dosage: UNK
  20. OBINUTUZUMAB. [Suspect]
     Active Substance: OBINUTUZUMAB
     Indication: B-CELL LYMPHOMA
     Dosage: 1000 MG, QW
     Route: 065
     Dates: start: 201802
  21. OBINUTUZUMAB. [Suspect]
     Active Substance: OBINUTUZUMAB
     Dosage: 1000 MG, UNKNOWN FREQ. (EVERY 8 WEEKS)
     Route: 042
     Dates: start: 20180219, end: 20190109
  22. RITUXIMAB (UNKNOWN) [Suspect]
     Active Substance: RITUXIMAB
     Indication: PRIMARY GASTROINTESTINAL FOLLICULAR LYMPHOMA
     Dosage: INDUCTION TREATMENT
  23. RITUXIMAB (UNKNOWN) [Suspect]
     Active Substance: RITUXIMAB
     Indication: B-CELL LYMPHOMA
     Dosage: UNK
     Route: 065
     Dates: start: 201707, end: 201712
  24. BENDAMUSTINE [Suspect]
     Active Substance: BENDAMUSTINE
     Dosage: UNK
     Route: 065
  25. BENDAMUSTINE [Suspect]
     Active Substance: BENDAMUSTINE
     Dosage: UNK (6 CYCLES)
     Route: 065
     Dates: start: 201707, end: 201712
  26. OBINUTUZUMAB. [Suspect]
     Active Substance: OBINUTUZUMAB
     Dosage: 1000 MG, QW
     Route: 065
     Dates: start: 201802
  27. OBINUTUZUMAB. [Suspect]
     Active Substance: OBINUTUZUMAB
     Dosage: 1000 MG, Q2MO
     Route: 065
     Dates: start: 201802
  28. BENDAMUSTINE [Suspect]
     Active Substance: BENDAMUSTINE
     Dosage: UNKNOWN
     Route: 065
     Dates: start: 201707, end: 201712
  29. OBINUTUZUMAB. [Suspect]
     Active Substance: OBINUTUZUMAB
     Indication: NON-HODGKIN^S LYMPHOMA
     Dosage: 1000 MG, EVERY 8 WEEKS / 1000 MG, UNKNOWN FREQ. (EVERY 8 WEEKS)
     Route: 042
     Dates: start: 20180219, end: 20190109
  30. OBINUTUZUMAB. [Suspect]
     Active Substance: OBINUTUZUMAB
     Dosage: 1000 MILLIGRAM, Q8WEEKS
     Route: 065
     Dates: start: 201802

REACTIONS (19)
  - Colitis ulcerative [Fatal]
  - Multiple organ dysfunction syndrome [Fatal]
  - Hypogammaglobulinaemia [Fatal]
  - Gastrointestinal haemorrhage [Not Recovered/Not Resolved]
  - Seizure [Fatal]
  - Lower gastrointestinal haemorrhage [Fatal]
  - Large intestinal ulcer [Fatal]
  - Renal failure [Fatal]
  - Enterovirus infection [Fatal]
  - Deafness [Fatal]
  - Intentional product use issue [Fatal]
  - Hypotension [Fatal]
  - Disturbance in attention [Fatal]
  - Pyrexia [Fatal]
  - Retroperitoneal haemorrhage [Fatal]
  - Acute hepatic failure [Fatal]
  - Meningitis enteroviral [Fatal]
  - Immunosuppression [Fatal]
  - Off label use [Fatal]

NARRATIVE: CASE EVENT DATE: 2019
